FAERS Safety Report 9125760 (Version 2)
Quarter: 2013Q2

REPORT INFORMATION
  Report Type: Spontaneous
  Country: US (occurrence: US)
  Receive Date: 20130227
  Receipt Date: 20130606
  Transmission Date: 20140414
  Serious: No
  Sender: FDA-Public Use
  Company Number: US-009507513-1302USA011123

PATIENT
  Age: 44 Year
  Sex: Male
  Weight: 70.75 kg

DRUGS (18)
  1. ISENTRESS [Suspect]
     Indication: HIV INFECTION
     Dosage: 400 MG, BID
     Route: 048
     Dates: start: 20081031, end: 20130214
  2. ATENOLOL (+) CHLORTHALIDONE [Concomitant]
     Dosage: 50-25 MG, QD
     Route: 048
     Dates: start: 20110813, end: 20121205
  3. LEXAPRO [Concomitant]
     Dosage: 2 TABS ONCE A DAY
  4. BUSPIRONE HYDROCHLORIDE [Concomitant]
     Dosage: 2 TABLETS, BID
     Route: 048
     Dates: start: 20120904
  5. XYZAL [Concomitant]
     Dosage: 1 TABLET, QD
     Route: 048
     Dates: start: 20110610, end: 20120607
  6. LISINOPRIL [Concomitant]
     Dosage: 1 TABLET, QD
     Route: 048
     Dates: start: 20120529
  7. RHINOCORT AQUA [Concomitant]
     Dosage: 2 SPRAYS EACH NOSTRIL EVERY DAY
     Route: 045
     Dates: start: 20120529
  8. ZINC GLUCONATE [Concomitant]
     Dosage: UNK
     Dates: start: 20101103
  9. ANUSOL HC (BENZYL BENZOATE (+) BISMUTH OXIDE (+) BISMUTH SUBGALLATE (+ [Concomitant]
     Dosage: BID AS NEEDED
     Route: 054
     Dates: start: 20100601
  10. NEXIUM [Concomitant]
     Dosage: UNK, QD
     Dates: start: 20090214
  11. TRUVADA [Concomitant]
     Dosage: 200-300 MG, TABLET 1, QD
     Dates: start: 20081031
  12. VICODIN [Concomitant]
     Dosage: 5-300 MG TABLET 1 ORAL Q 6 HOURS AS NEEDED
     Route: 048
     Dates: start: 20130212
  13. PAROXETINE [Concomitant]
     Dosage: TABLET 1, QD
     Route: 048
     Dates: start: 20130109
  14. ZOLOFT [Concomitant]
     Dosage: TABLET 2 ORAL DAILY
     Route: 048
     Dates: start: 20120623
  15. INFLUENZA VIRUS VACCINE [Concomitant]
     Indication: PROPHYLAXIS
     Dates: start: 201210, end: 201210
  16. PNEUMOVAX23 [Concomitant]
     Indication: PROPHYLAXIS
     Dates: start: 20091203, end: 20091203
  17. TETANUS TOXOID ADSORBED [Concomitant]
     Dates: start: 20120515, end: 20120515
  18. FERROUS GLUCONATE [Concomitant]

REACTIONS (18)
  - Myalgia [Recovering/Resolving]
  - Muscle spasms [Recovering/Resolving]
  - Abdominal pain upper [Recovering/Resolving]
  - Neuropathy peripheral [Unknown]
  - Polyneuropathy [Unknown]
  - Myopathy [Unknown]
  - Myelopathy [Unknown]
  - Muscular weakness [Unknown]
  - Essential hypertension [Unknown]
  - Rhinitis allergic [Unknown]
  - Haemorrhoids [Unknown]
  - Gastrooesophageal reflux disease [Unknown]
  - Impaired fasting glucose [Unknown]
  - Red blood cell sedimentation rate increased [Unknown]
  - Blood testosterone decreased [Unknown]
  - Hypoproteinaemia [Unknown]
  - Nodule [Unknown]
  - Muscular weakness [Unknown]
